FAERS Safety Report 8124060-X (Version None)
Quarter: 2012Q1

REPORT INFORMATION
  Report Type: 
  Country: None (occurrence: None)
  Receive Date: 20120209
  Receipt Date: 20120206
  Transmission Date: 20120608
  Serious: No
  Sender: FDA-Public Use
  Company Number: US-PFIZER INC-2012032468

PATIENT
  Sex: Male

DRUGS (1)
  1. CELEBREX [Suspect]
     Indication: INTERVERTEBRAL DISCITIS
     Dosage: 200 MG, UNK

REACTIONS (1)
  - DRUG INEFFECTIVE [None]
